FAERS Safety Report 9778663 (Version 3)
Quarter: 2014Q1

REPORT INFORMATION
  Report Type: Report from Study
  Country: US (occurrence: US)
  Receive Date: 20131223
  Receipt Date: 20140114
  Transmission Date: 20141002
  Serious: Yes (Hospitalization)
  Sender: FDA-Public Use
  Company Number: US-JNJFOC-20131212144

PATIENT
  Age: 17 Year
  Sex: Male
  Weight: 82.7 kg

DRUGS (13)
  1. REMICADE [Suspect]
     Indication: CROHN^S DISEASE
     Route: 042
     Dates: start: 20090126
  2. REMICADE [Suspect]
     Indication: CROHN^S DISEASE
     Route: 042
     Dates: start: 20061016
  3. HUMIRA [Concomitant]
     Route: 065
     Dates: start: 20121027
  4. HUMIRA [Concomitant]
     Route: 065
     Dates: start: 20110427
  5. HUMIRA [Concomitant]
     Route: 065
     Dates: start: 20110817
  6. HUMIRA [Concomitant]
     Route: 065
     Dates: start: 20120922
  7. MULTIVITAMINS [Concomitant]
     Route: 065
  8. IRON [Concomitant]
     Route: 065
  9. VITAMIN D [Concomitant]
     Route: 065
  10. FLUOCINOLONE CREAM [Concomitant]
     Route: 065
  11. HYDROCORTISONE CREAM [Concomitant]
     Route: 065
  12. MUPIROCIN [Concomitant]
     Route: 065
  13. ACETAMINOPHEN [Concomitant]
     Route: 065

REACTIONS (1)
  - Proctitis [Recovered/Resolved]
